FAERS Safety Report 18820943 (Version 1)
Quarter: 2021Q1

REPORT INFORMATION
  Report Type: Spontaneous
  Country: CZ (occurrence: CZ)
  Receive Date: 20210202
  Receipt Date: 20210202
  Transmission Date: 20210419
  Serious: Yes (Life-Threatening, Hospitalization)
  Sender: FDA-Public Use
  Company Number: CZ-ROCHE-2760007

PATIENT
  Age: 38 Year
  Sex: Male

DRUGS (2)
  1. OCREVUS [Suspect]
     Active Substance: OCRELIZUMAB
     Indication: RELAPSING-REMITTING MULTIPLE SCLEROSIS
     Dosage: OVERALL 4 TIMES
     Route: 042
     Dates: start: 20190116, end: 20200722
  2. ARGOFAN [Concomitant]
     Active Substance: VENLAFAXINE HYDROCHLORIDE
     Indication: DEPRESSION
     Dosage: THE DOSAGE 1?0?0
     Route: 048

REACTIONS (7)
  - Nasal cavity cancer [Not Recovered/Not Resolved]
  - Exophthalmos [Unknown]
  - Conjunctivitis [Unknown]
  - Epistaxis [Unknown]
  - Rhinitis [Unknown]
  - Visual impairment [Unknown]
  - Anosmia [Unknown]

NARRATIVE: CASE EVENT DATE: 202009
